FAERS Safety Report 7784278-2 (Version None)
Quarter: 2011Q3

REPORT INFORMATION
  Report Type: 
  Country: None (occurrence: None)
  Receive Date: 20110928
  Receipt Date: 20110915
  Transmission Date: 20111222
  Serious: Yes (Hospitalization)
  Sender: FDA-Public Use
  Company Number: PHEH2011US04348

PATIENT
  Age: 61 Year
  Sex: Female

DRUGS (7)
  1. CYCLOSPORINE [Suspect]
     Indication: PROPHYLAXIS AGAINST TRANSPLANT REJECTION
     Dosage: 150 MG, QD
     Dates: start: 20090517
  2. AZATHIOPRINE [Concomitant]
     Indication: LUNG TRANSPLANT REJECTION
     Dosage: 100 MG, QD
     Dates: start: 20090517
  3. IMURAN [Concomitant]
     Dosage: 50 MG, QD
     Dates: start: 20090501
  4. PREDNISONE [Concomitant]
     Dosage: 40 MG, QD
     Dates: start: 20090517
  5. METHYLPREDNISOLONE [Concomitant]
     Indication: LUNG TRANSPLANT REJECTION
     Dosage: UNK UKN, UNK
  6. SEPTRA DS [Concomitant]
     Dosage: 1 DF (800MG/ 160MG), QD
     Dates: start: 20090517
  7. SIROLIMUS [Concomitant]
     Indication: LUNG TRANSPLANT REJECTION
     Dosage: UNK UKN, UNK

REACTIONS (1)
  - ASPIRATION [None]
